FAERS Safety Report 16176099 (Version 2)
Quarter: 2019Q2

REPORT INFORMATION
  Report Type: Spontaneous
  Country: US (occurrence: US)
  Receive Date: 20190409
  Receipt Date: 20190517
  Transmission Date: 20190711
  Serious: Yes (Other)
  Sender: FDA-Public Use
  Company Number: US-ASTRAZENECA-2019SE52557

PATIENT
  Age: 76 Year
  Sex: Female
  Weight: 59.9 kg

DRUGS (6)
  1. SYMBICORT [Suspect]
     Active Substance: BUDESONIDE\FORMOTEROL FUMARATE DIHYDRATE
     Indication: WHEEZING
     Dosage: 160/4.5 MCG TWO PUFFS TWICE DAILY
     Route: 055
  2. SYMBICORT [Suspect]
     Active Substance: BUDESONIDE\FORMOTEROL FUMARATE DIHYDRATE
     Indication: DYSPNOEA
     Dosage: 160/4.5 MCG TWO PUFFS TWICE DAILY
     Route: 055
  3. FEXOFENADINE HYDROCHLORIDE. [Concomitant]
     Active Substance: FEXOFENADINE HYDROCHLORIDE
     Route: 048
  4. TAMOXIFEN CITRATE. [Concomitant]
     Active Substance: TAMOXIFEN CITRATE
     Indication: NEOPLASM MALIGNANT
     Route: 048
  5. VENTOLIN HFA [Concomitant]
     Active Substance: ALBUTEROL SULFATE
     Indication: LUNG DISORDER
     Dosage: 90 MCG, 2 PUFFS 4 TIMES DAILY AS NEEDED
     Route: 055
  6. AMLODIPINE-BENAZEPRIL 5-10 [Concomitant]
     Indication: BLOOD PRESSURE ABNORMAL
     Route: 048

REACTIONS (9)
  - Colon cancer [Unknown]
  - Breast mass [Unknown]
  - Intentional product misuse [Unknown]
  - Breast cancer [Unknown]
  - Recurrent cancer [Unknown]
  - Product dose omission [Unknown]
  - Lung disorder [Unknown]
  - Metastases to lung [Unknown]
  - Device failure [Unknown]

NARRATIVE: CASE EVENT DATE: 2012
